FAERS Safety Report 6258469-6 (Version None)
Quarter: 2009Q3

REPORT INFORMATION
  Report Type: 
  Country: None (occurrence: None)
  Receive Date: 20090707
  Receipt Date: 20090625
  Transmission Date: 20100115
  Serious: Yes (Hospitalization)
  Sender: FDA-Public Use
  Company Number: FR-PFIZER INC-2009232117

PATIENT
  Age: 96 Year

DRUGS (4)
  1. ALDACTONE [Suspect]
     Dosage: 75 MG, 1X/DAY
     Route: 048
     Dates: end: 20090124
  2. AMLOR [Concomitant]
     Dosage: 5 MG, 1X/DAY
     Route: 048
  3. PHYSIOTENS [Concomitant]
     Indication: HYPERTENSION
     Dosage: 0.4 MG, 1X/DAY
     Route: 048
  4. PRAZEPAM [Concomitant]
     Dosage: 10 MG, 1X/DAY
     Route: 048

REACTIONS (2)
  - DEHYDRATION [None]
  - HYPERNATRAEMIA [None]
